FAERS Safety Report 11441807 (Version 1)
Quarter: 2015Q3

REPORT INFORMATION
  Report Type: Spontaneous
  Country: US (occurrence: US)
  Receive Date: 20150901
  Receipt Date: 20150901
  Transmission Date: 20151125
  Serious: Yes (Life-Threatening, Hospitalization)
  Sender: FDA-Public Use
  Company Number: US-MYLANLABS-2015M1017166

PATIENT
  Age: 62 Year
  Sex: Female
  Weight: 55.33 kg

DRUGS (1)
  1. ISOSULFAN BLUE INJECTION [Suspect]
     Active Substance: ISOSULFAN BLUE
     Dosage: 5 ML, ONCE
     Dates: start: 20150520, end: 20150520

REACTIONS (2)
  - Anaphylactic reaction [Recovered/Resolved]
  - Acute respiratory failure [Recovered/Resolved]

NARRATIVE: CASE EVENT DATE: 20150520
